FAERS Safety Report 14206783 (Version 1)
Quarter: 2017Q4

REPORT INFORMATION
  Report Type: Spontaneous
  Country: KR (occurrence: KR)
  Receive Date: 20171121
  Receipt Date: 20171121
  Transmission Date: 20180321
  Serious: Yes (Other)
  Sender: FDA-Public Use
  Company Number: KR-IPCA LABORATORIES LIMITED-IPC-2017-KR-003618

PATIENT
  Age: 62 Year
  Sex: Female

DRUGS (1)
  1. HYDROXYCHLOROQUINE [Suspect]
     Active Substance: HYDROXYCHLOROQUINE
     Indication: SYSTEMIC LUPUS ERYTHEMATOSUS
     Dosage: 400 MG, QD
     Route: 065

REACTIONS (4)
  - Visual impairment [Recovered/Resolved]
  - Retinal toxicity [Unknown]
  - Retinopathy [Unknown]
  - Cystoid macular oedema [Recovered/Resolved]
